FAERS Safety Report 15636791 (Version 1)
Quarter: 2018Q4

REPORT INFORMATION
  Report Type: Spontaneous
  Country: US (occurrence: US)
  Receive Date: 20181120
  Receipt Date: 20181120
  Transmission Date: 20190205
  Serious: Yes (Hospitalization)
  Sender: FDA-Public Use
  Company Number: US-GLAXOSMITHKLINE-US2018207514

PATIENT
  Sex: Female

DRUGS (2)
  1. LAMOTRIGINE. [Suspect]
     Active Substance: LAMOTRIGINE
     Indication: EPILEPSY
     Dosage: 100 MG, QID
     Dates: start: 201810
  2. LAMICTAL [Concomitant]
     Active Substance: LAMOTRIGINE
     Dosage: UNK
     Dates: end: 201810

REACTIONS (13)
  - Bruxism [Unknown]
  - Chest discomfort [Unknown]
  - Chills [Unknown]
  - Vomiting [Unknown]
  - Nausea [Unknown]
  - Gingival bleeding [Unknown]
  - Anxiety [Unknown]
  - Weight decreased [Unknown]
  - Blepharospasm [Unknown]
  - Gait disturbance [Unknown]
  - Depression [Unknown]
  - Decreased appetite [Unknown]
  - Muscle twitching [Unknown]
